FAERS Safety Report 16101578 (Version 1)
Quarter: 2019Q1

REPORT INFORMATION
  Report Type: Spontaneous
  Country: ES (occurrence: ES)
  Receive Date: 20190321
  Receipt Date: 20190321
  Transmission Date: 20190418
  Serious: Yes (Life-Threatening, Other)
  Sender: FDA-Public Use
  Company Number: ES-PFIZER INC-2019121530

PATIENT
  Age: 36 Year
  Sex: Female

DRUGS (3)
  1. OXYTOCIN. [Suspect]
     Active Substance: OXYTOCIN
     Indication: POSTPARTUM HAEMORRHAGE
     Dosage: UNK
     Route: 042
     Dates: start: 20190110, end: 20190110
  2. METHYLERGOMETRINE MALEATE [Suspect]
     Active Substance: METHYLERGONOVINE MALEATE
     Indication: POSTPARTUM HAEMORRHAGE
     Dosage: 0.2 MG, SINGLE
     Route: 030
     Dates: start: 20190110, end: 20190110
  3. MISOPROSTOL. [Suspect]
     Active Substance: MISOPROSTOL
     Indication: POSTPARTUM HAEMORRHAGE
     Dosage: UNK
     Route: 054
     Dates: start: 20190110, end: 20190110

REACTIONS (2)
  - Product use in unapproved indication [Unknown]
  - Anaphylactic shock [Recovered/Resolved]

NARRATIVE: CASE EVENT DATE: 20190110
